FAERS Safety Report 8872100 (Version 3)
Quarter: 2013Q1

REPORT INFORMATION
  Report Type: Spontaneous
  Country: JP (occurrence: JP)
  Receive Date: 20121029
  Receipt Date: 20130205
  Transmission Date: 20140127
  Serious: Yes (Death, Life-Threatening, Hospitalization)
  Sender: FDA-Public Use
  Company Number: JP-AMGEN-JPNSP2012068444

PATIENT
  Age: 68 Year
  Sex: Male
  Weight: 86 kg

DRUGS (18)
  1. VECTIBIX [Suspect]
     Indication: COLON CANCER
     Dosage: UNK UNK, Q3WK
     Route: 041
     Dates: start: 20110408
  2. VECTIBIX [Suspect]
     Indication: COLON CANCER
     Dosage: 300 MG, Q3WK
     Route: 041
     Dates: start: 20120525
  3. VECTIBIX [Suspect]
     Dosage: 200 MG, Q3WK
     Route: 041
     Dates: start: 20120824, end: 20120824
  4. VECTIBIX [Suspect]
     Dosage: 300 MG, UNK
     Route: 041
     Dates: start: 20120911, end: 20120926
  5. IRINOTECAN HYDROCHLORIDE [Concomitant]
     Dosage: UNK UNK, Q2WK
     Route: 041
     Dates: start: 20110408
  6. 5 FU [Concomitant]
     Dosage: UNK UNK, Q2WK
     Route: 040
     Dates: start: 20110408
  7. 5 FU [Concomitant]
     Dosage: UNK UNK, Q2WK
     Dates: start: 20110408
  8. 5 FU [Concomitant]
     Dosage: UNK UNK, Q2WK
     Route: 040
     Dates: start: 20120525
  9. 5 FU [Concomitant]
     Dosage: UNK UNK, Q2WK
     Route: 041
     Dates: start: 20120525
  10. 5 FU [Concomitant]
     Dosage: UNK UNK, Q2WK
     Route: 040
     Dates: start: 20120911, end: 20120911
  11. 5 FU [Concomitant]
     Dosage: 2350 UNK, Q2WK
     Route: 041
     Dates: start: 20120911, end: 20120911
  12. 5 FU [Concomitant]
     Dosage: 2100 UNK, Q2WK
     Route: 041
     Dates: start: 20120926, end: 20120926
  13. CALCIUM LEVOFOLINATE [Concomitant]
     Dosage: UNK UNK, Q2WK
     Route: 041
     Dates: start: 20110408
  14. CALCIUM LEVOFOLINATE [Concomitant]
     Dosage: UNK UNK, Q2WK
     Route: 041
     Dates: start: 20120525
  15. CALCIUM LEVOFOLINATE [Concomitant]
     Dosage: UNK UNK, Q2WK
     Route: 041
     Dates: start: 20120926, end: 20120926
  16. ELPLAT [Concomitant]
     Dosage: UNK UNK, Q2WK
     Route: 041
     Dates: start: 20120525
  17. ELPLAT [Concomitant]
     Dosage: 80 UNK, Q2WK
     Route: 041
     Dates: start: 20120911, end: 20120911
  18. ELPLAT [Concomitant]
     Dosage: 75 MG, Q2WK
     Route: 041
     Dates: start: 20120926, end: 20120926

REACTIONS (12)
  - Sepsis [Fatal]
  - Multi-organ failure [Fatal]
  - Disseminated intravascular coagulation [Fatal]
  - Skin ulcer [Fatal]
  - Neuropathy peripheral [Unknown]
  - Gait disturbance [Unknown]
  - Dizziness [Unknown]
  - Dermatitis acneiform [Unknown]
  - Dry skin [Unknown]
  - Skin fissures [Unknown]
  - Paronychia [Unknown]
  - Constipation [Unknown]
